FAERS Safety Report 7858415-5 (Version None)
Quarter: 2011Q4

REPORT INFORMATION
  Report Type: 
  Country: None (occurrence: None)
  Receive Date: 20111027
  Receipt Date: 20111021
  Transmission Date: 20120403
  Serious: Yes (Hospitalization)
  Sender: FDA-Public Use
  Company Number: PHEH2011US07517

PATIENT
  Age: 6 Year
  Sex: Female
  Weight: 19.048 kg

DRUGS (2)
  1. TOBI [Suspect]
     Dosage: 300 MG, 1 AMPULE VIA NEBULIZER TWICE A DAY FOR 28 DAYS
     Dates: start: 20100901
  2. TOPAMAX [Concomitant]
     Dosage: UNK

REACTIONS (1)
  - CONVULSION [None]
